FAERS Safety Report 11665362 (Version 1)
Quarter: 2015Q4

REPORT INFORMATION
  Report Type: Spontaneous
  Country: US (occurrence: US)
  Receive Date: 20151027
  Receipt Date: 20151027
  Transmission Date: 20160304
  Serious: No
  Sender: FDA-Public Use
  Company Number: US-TRIS PHARMA, INC.-1043437

PATIENT
  Age: 19 Month
  Sex: Female
  Weight: 9.55 kg

DRUGS (1)
  1. IBUPROFEN INFANTS [Suspect]
     Active Substance: IBUPROFEN
     Indication: ANALGESIC THERAPY
     Route: 048

REACTIONS (1)
  - Drug administration error [Unknown]
